FAERS Safety Report 5670347-X (Version None)
Quarter: 2008Q2

REPORT INFORMATION
  Report Type: 
  Country: None (occurrence: None)
  Receive Date: 20080229
  Receipt Date: 20071009
  Transmission Date: 20081010
  Serious: Yes (Other)
  Sender: FDA-Public Use
  Company Number: 247195

PATIENT
  Age: 48 Year
  Sex: Female

DRUGS (6)
  1. NUTROPIN AQ [Suspect]
     Indication: GROWTH HORMONE DEFICIENCY
     Dosage: 0.4 MG, QD, SUBCUTANEOUS
     Route: 058
     Dates: start: 20070701
  2. HORMONE THERAPY (UNK INGREDIENTS) (HORMONES NOS0 [Concomitant]
  3. BYETTA [Concomitant]
  4. DEXAMETHASONE [Concomitant]
  5. LEVOTHYROXINE SODIUM [Concomitant]
  6. ACIPHEX [Concomitant]

REACTIONS (1)
  - BREAST CANCER [None]
